FAERS Safety Report 19437029 (Version 4)
Quarter: 2021Q3

REPORT INFORMATION
  Report Type: Report from Study
  Country: US (occurrence: US)
  Receive Date: 20210618
  Receipt Date: 20210813
  Transmission Date: 20211014
  Serious: No
  Sender: FDA-Public Use
  Company Number: NVSC2021US135060

PATIENT
  Sex: Male
  Weight: 62.13 kg

DRUGS (7)
  1. TREPROSTINIL. [Suspect]
     Active Substance: TREPROSTINIL
     Dosage: 22 NANOGRAM PER KILOGRAM
     Route: 042
     Dates: start: 20210610
  2. SILDENAFIL CITRATE. [Concomitant]
     Active Substance: SILDENAFIL CITRATE
     Indication: PRODUCT USED FOR UNKNOWN INDICATION
     Dosage: UNK
     Route: 065
  3. TREPROSTINIL. [Suspect]
     Active Substance: TREPROSTINIL
     Indication: PULMONARY ARTERIAL HYPERTENSION
     Dosage: 20 NANOGRAM PER KILOGRAM PER MINUTE
     Route: 042
  4. LETAIRIS [Concomitant]
     Active Substance: AMBRISENTAN
     Indication: PRODUCT USED FOR UNKNOWN INDICATION
     Dosage: UNK
     Route: 065
  5. TREPROSTINIL. [Suspect]
     Active Substance: TREPROSTINIL
     Dosage: UNK, 30 NG PER KG PER MINUTE
     Route: 065
  6. ORENITRAM [Concomitant]
     Active Substance: TREPROSTINIL
     Indication: PRODUCT USED FOR UNKNOWN INDICATION
     Dosage: UNK
     Route: 065
  7. TREPROSTINIL. [Suspect]
     Active Substance: TREPROSTINIL
     Dosage: UNK, DOSE ? 20 NG/KG/MIN, FREQUENCY ? COUNTINUOUS
     Route: 042
     Dates: start: 20210407

REACTIONS (4)
  - Pruritus [Recovered/Resolved]
  - Cough [Unknown]
  - Skin irritation [Unknown]
  - Catheter site haemorrhage [Unknown]
